FAERS Safety Report 6612114-6 (Version None)
Quarter: 2010Q1

REPORT INFORMATION
  Report Type: 
  Country: None (occurrence: None)
  Receive Date: 20100303
  Receipt Date: 20100216
  Transmission Date: 20100710
  Serious: Yes (Other)
  Sender: FDA-Public Use
  Company Number: US-SP-2010-01111

PATIENT
  Sex: Male

DRUGS (1)
  1. THERACYS [Suspect]
     Indication: IMMUNISATION
     Route: 043
     Dates: start: 20091118, end: 20091118

REACTIONS (4)
  - DYSURIA [None]
  - PYREXIA [None]
  - SUPRAPUBIC PAIN [None]
  - URETHRITIS [None]
